FAERS Safety Report 9343219 (Version 1)
Quarter: 2013Q2

REPORT INFORMATION
  Report Type: Report from Study
  Country: US (occurrence: US)
  Receive Date: 20130611
  Receipt Date: 20130611
  Transmission Date: 20140414
  Serious: Yes (Death, Hospitalization, Other)
  Sender: FDA-Public Use
  Company Number: US-B.I. PHARMACEUTICALS,INC./RIDGEFIELD-2013-BI-16522GD

PATIENT
  Age: 40 Year
  Sex: Male

DRUGS (8)
  1. VIRAMUNE [Suspect]
     Indication: ACQUIRED IMMUNODEFICIENCY SYNDROME
  2. TENOFOVIR [Suspect]
     Indication: ACQUIRED IMMUNODEFICIENCY SYNDROME
  3. RITONAVIR-BOOSTED LOPINAVIR [Suspect]
     Indication: ACQUIRED IMMUNODEFICIENCY SYNDROME
  4. METHAMPHETAMINE [Suspect]
     Route: 048
  5. STAVUDINE [Suspect]
  6. DIDANOSINE [Suspect]
  7. PEGYLATED INTERFERON [Concomitant]
     Indication: HEPATITIS C
  8. RIBAVIRIN [Concomitant]
     Indication: HEPATITIS C

REACTIONS (8)
  - Hepatic failure [Fatal]
  - Hepatic cirrhosis [Unknown]
  - Ascites [Unknown]
  - Hepatitis [Unknown]
  - Hepatic fibrosis [Unknown]
  - Hepatic fibrosis [Unknown]
  - Hepatitis [Unknown]
  - Hepatic enzyme increased [Unknown]
